FAERS Safety Report 4772677-2 (Version None)
Quarter: 2005Q3

REPORT INFORMATION
  Report Type: 
  Country: None (occurrence: None)
  Receive Date: 20050919
  Receipt Date: 20050909
  Transmission Date: 20060218
  Serious: Yes (Life-Threatening)
  Sender: FDA-Public Use
  Company Number: 200513118EU

PATIENT
  Age: 82 Year
  Sex: Male

DRUGS (3)
  1. SEGURIL [Suspect]
     Route: 048
     Dates: start: 20041126, end: 20041203
  2. VALS [Suspect]
     Route: 048
     Dates: start: 20041126, end: 20041203
  3. AMERIDE [Suspect]
     Route: 048
     Dates: start: 20041126, end: 20041203

REACTIONS (2)
  - HYPERKALAEMIA [None]
  - RENAL FAILURE ACUTE [None]
